FAERS Safety Report 16165203 (Version 2)
Quarter: 2019Q2

REPORT INFORMATION
  Report Type: Spontaneous
  Country: PT (occurrence: PT)
  Receive Date: 20190405
  Receipt Date: 20190429
  Transmission Date: 20190711
  Serious: Yes (Hospitalization, Other)
  Sender: FDA-Public Use
  Company Number: PT-BAUSCH-BL-2019-009685

PATIENT
  Age: 69 Year
  Sex: Female

DRUGS (6)
  1. METFORMIN [Suspect]
     Active Substance: METFORMIN HYDROCHLORIDE
     Indication: PRODUCT USED FOR UNKNOWN INDICATION
     Route: 065
  2. DAPAGLIFLOZIN. [Interacting]
     Active Substance: DAPAGLIFLOZIN
     Indication: OFF LABEL USE
  3. METFORMIN [Interacting]
     Active Substance: METFORMIN HYDROCHLORIDE
     Indication: OFF LABEL USE
  4. FUROSEMIDE. [Suspect]
     Active Substance: FUROSEMIDE
     Indication: PRODUCT USED FOR UNKNOWN INDICATION
     Route: 065
  5. FUROSEMIDE. [Suspect]
     Active Substance: FUROSEMIDE
     Indication: OFF LABEL USE
  6. DAPAGLIFLOZIN. [Interacting]
     Active Substance: DAPAGLIFLOZIN
     Indication: PRODUCT USED FOR UNKNOWN INDICATION
     Route: 065

REACTIONS (7)
  - Off label use [Unknown]
  - Drug interaction [Unknown]
  - Cardiac failure [Unknown]
  - Diabetic ketoacidosis [Unknown]
  - Diabetic metabolic decompensation [Unknown]
  - Acute kidney injury [Unknown]
  - Drug ineffective [Unknown]
